FAERS Safety Report 8893453 (Version 1)
Quarter: 2012Q4

REPORT INFORMATION
  Report Type: 
  Country: US (occurrence: US)
  Receive Date: 20121107
  Receipt Date: 20121107
  Transmission Date: 20130627
  Serious: No
  Sender: FDA-Public Use
  Company Number: US-AMGEN-USASP2011061357

PATIENT
  Age: 67 Year
  Sex: Male

DRUGS (4)
  1. ENBREL [Suspect]
     Indication: PRODUCT USED FOR UNKNOWN INDICATION
     Dosage: 50 mg, qwk
  2. ATENOLOL [Concomitant]
     Dosage: 25 mg, UNK
  3. TRIAMTEREN HCT [Concomitant]
     Dosage: UNK
  4. VITAMIN B 1-6-12 [Concomitant]

REACTIONS (1)
  - Injection site discomfort [Unknown]
